FAERS Safety Report 20182072 (Version 1)
Quarter: 2021Q4

REPORT INFORMATION
  Report Type: Spontaneous
  Country: US (occurrence: KR)
  Receive Date: 20211214
  Receipt Date: 20211214
  Transmission Date: 20220303
  Serious: Yes (Hospitalization, Other)
  Sender: FDA-Public Use
  Company Number: US-SA-2021SA408944

PATIENT
  Age: 77 Year
  Sex: Female

DRUGS (5)
  1. CAPRELSA [Suspect]
     Active Substance: VANDETANIB
     Indication: Medullary thyroid cancer
     Dosage: 300 MG, QD
     Dates: start: 20210303, end: 20210903
  2. LEVOTHYROXINE [Concomitant]
     Active Substance: LEVOTHYROXINE
     Indication: Medullary thyroid cancer
     Dosage: 150 MG
     Dates: start: 20180424
  3. ALFACALCIDOL [Concomitant]
     Active Substance: ALFACALCIDOL
     Indication: Osteopenia
     Dosage: UNK
     Dates: start: 20180227
  4. CALCIUM CARBONATE [Concomitant]
     Active Substance: CALCIUM CARBONATE
     Indication: Medullary thyroid cancer
     Dosage: UNK
     Dates: start: 20190828
  5. PITAVASTATIN [Concomitant]
     Active Substance: PITAVASTATIN
     Dosage: UNK
     Dates: start: 20210331

REACTIONS (1)
  - Malignant neoplasm progression [Unknown]
